FAERS Safety Report 10203792 (Version 1)
Quarter: 2014Q2

REPORT INFORMATION
  Report Type: Spontaneous
  Country: ES (occurrence: ES)
  Receive Date: 20140529
  Receipt Date: 20140529
  Transmission Date: 20141212
  Serious: Yes (Other)
  Sender: FDA-Public Use
  Company Number: ES-VERTEX PHARMACEUTICALS INC-2014-002546

PATIENT
  Sex: 0

DRUGS (3)
  1. INCIVO [Suspect]
     Indication: HEPATITIS C
     Route: 048
  2. RIBAVIRIN [Suspect]
     Indication: HEPATITIS C
     Dosage: UNK
     Route: 065
  3. PEG-INTERFERON [Suspect]
     Indication: HEPATITIS C
     Dosage: UNK
     Route: 065

REACTIONS (8)
  - Neutropenia [Unknown]
  - Anaemia [Unknown]
  - Thrombocytopenia [Unknown]
  - Skin reaction [Unknown]
  - Infection [Unknown]
  - Anorectal disorder [Unknown]
  - Pruritus [Unknown]
  - Dysgeusia [Unknown]
